FAERS Safety Report 10403958 (Version 2)
Quarter: 2014Q3

REPORT INFORMATION
  Report Type: Spontaneous
  Country: US (occurrence: US)
  Receive Date: 20140822
  Receipt Date: 20140822
  Transmission Date: 20150326
  Serious: Yes (Hospitalization, Other)
  Sender: FDA-Public Use
  Company Number: US-009507513-2009-190782-NL

PATIENT
  Sex: Female
  Weight: 120.2 kg

DRUGS (3)
  1. NUVARING [Suspect]
     Active Substance: ETHINYL ESTRADIOL\ETONOGESTREL
     Indication: PRODUCT USED FOR UNKNOWN INDICATION
     Dosage: UNK
     Route: 067
     Dates: start: 200612, end: 20070228
  2. IBUPROFEN. [Concomitant]
     Active Substance: IBUPROFEN
     Indication: PAIN
  3. ACETAMINOPHEN. [Concomitant]
     Active Substance: ACETAMINOPHEN
     Indication: PAIN

REACTIONS (8)
  - Pulmonary embolism [Unknown]
  - Streptococcus test positive [Unknown]
  - Hypothyroidism [Unknown]
  - Menorrhagia [Unknown]
  - Depression [Unknown]
  - Maternal exposure before pregnancy [Unknown]
  - Uterine dilation and curettage [Unknown]
  - Postpartum haemorrhage [Unknown]

NARRATIVE: CASE EVENT DATE: 2007
